FAERS Safety Report 20689189 (Version 2)
Quarter: 2023Q2

REPORT INFORMATION
  Report Type: Spontaneous
  Country: US (occurrence: US)
  Receive Date: 20220408
  Receipt Date: 20230602
  Transmission Date: 20230722
  Serious: Yes (Hospitalization)
  Sender: FDA-Public Use
  Company Number: US-MYLANLABS-2022M1025391

PATIENT
  Age: 31 Year
  Sex: Female

DRUGS (16)
  1. ADENOSINE [Suspect]
     Active Substance: ADENOSINE
     Indication: Atrial tachycardia
     Dosage: UNK
     Route: 042
  2. ADENOSINE [Suspect]
     Active Substance: ADENOSINE
     Dosage: UNK (IV BOLUS)
     Route: 042
  3. DILTIAZEM [Suspect]
     Active Substance: DILTIAZEM
     Indication: Atrial tachycardia
     Dosage: UNK (INTRAVENOUS BOLUS)
     Route: 042
  4. DILTIAZEM [Suspect]
     Active Substance: DILTIAZEM
     Dosage: 10 MILLIGRAM, QMINUTE (INFUSION)
     Route: 042
  5. DILTIAZEM [Suspect]
     Active Substance: DILTIAZEM
     Indication: Atrial tachycardia
     Dosage: UNK
     Route: 065
  6. METOPROLOL [Suspect]
     Active Substance: METOPROLOL
     Indication: Atrial tachycardia
     Dosage: UNK
     Route: 042
  7. METOPROLOL [Suspect]
     Active Substance: METOPROLOL
     Indication: Atrial tachycardia
     Dosage: UNK
     Route: 065
  8. METOPROLOL [Suspect]
     Active Substance: METOPROLOL
     Dosage: 100 MILLIGRAM, BID (TITRATED)
     Route: 065
  9. SOTALOL [Suspect]
     Active Substance: SOTALOL
     Indication: Atrial tachycardia
     Dosage: UNK
     Route: 065
  10. SOTALOL [Suspect]
     Active Substance: SOTALOL
     Dosage: 40 MILLIGRAM, BID
     Route: 065
  11. SOTALOL [Suspect]
     Active Substance: SOTALOL
     Dosage: 120 MILLIGRAM (REINITIATED)
     Route: 065
  12. ISOPROTERENOL HYDROCHLORIDE [Suspect]
     Active Substance: ISOPROTERENOL HYDROCHLORIDE
     Indication: Product used for unknown indication
     Dosage: UNK
     Route: 065
  13. FLECAINIDE [Suspect]
     Active Substance: FLECAINIDE
     Indication: Atrial tachycardia
     Dosage: UNK
     Route: 065
  14. FLECAINIDE [Suspect]
     Active Substance: FLECAINIDE
     Dosage: 100 MILLIGRAM, BID
     Route: 065
  15. FLECAINIDE [Suspect]
     Active Substance: FLECAINIDE
     Indication: Atrial tachycardia
     Dosage: 100 MILLIGRAM (TITRATED)
     Route: 048
  16. PHENYLEPHRINE [Suspect]
     Active Substance: PHENYLEPHRINE HYDROCHLORIDE
     Indication: Vasopressive therapy
     Dosage: UNK
     Route: 065

REACTIONS (3)
  - Drug ineffective [Unknown]
  - Maternal exposure during pregnancy [Recovered/Resolved]
  - Off label use [Unknown]
